FAERS Safety Report 5717016-5 (Version None)
Quarter: 2008Q2

REPORT INFORMATION
  Report Type: 
  Country: None (occurrence: None)
  Receive Date: 20080424
  Receipt Date: 20080414
  Transmission Date: 20081010
  Serious: Yes (Death, Hospitalization, Other)
  Sender: FDA-Public Use
  Company Number: US-PFIZER INC-2006061820

PATIENT
  Sex: Male
  Weight: 72.6 kg

DRUGS (4)
  1. CELEBREX [Suspect]
     Indication: ARTHRALGIA
     Dates: start: 20000714, end: 20001204
  2. CELEBREX [Suspect]
     Indication: ARTHRITIS
  3. BEXTRA [Suspect]
     Indication: ARTHRALGIA
     Dates: start: 20020715, end: 20020813
  4. BEXTRA [Suspect]
     Indication: ARTHRITIS

REACTIONS (3)
  - CARDIAC FAILURE CONGESTIVE [None]
  - CHEST PAIN [None]
  - MYOCARDIAL INFARCTION [None]
